FAERS Safety Report 6073240-6 (Version None)
Quarter: 2009Q1

REPORT INFORMATION
  Report Type: 
  Country: None (occurrence: None)
  Receive Date: 20090211
  Receipt Date: 20081211
  Transmission Date: 20090719
  Serious: No
  Sender: FDA-Public Use
  Company Number: A0759989A

PATIENT
  Age: 59 Year
  Sex: Male

DRUGS (2)
  1. ALTABAX [Suspect]
     Indication: SKIN LACERATION
     Dosage: 1APP PER DAY
     Route: 061
     Dates: start: 20081208, end: 20081210
  2. CEPHALEXIN [Concomitant]

REACTIONS (1)
  - APPLICATION SITE PAIN [None]
